FAERS Safety Report 21790390 (Version 1)
Quarter: 2022Q4

REPORT INFORMATION
  Report Type: Report from Study
  Country: US (occurrence: US)
  Receive Date: 20221228
  Receipt Date: 20221228
  Transmission Date: 20230113
  Serious: No
  Sender: FDA-Public Use
  Company Number: US-CLOVIS ONCOLOGY-CLO-2022-000164

PATIENT
  Sex: Female

DRUGS (5)
  1. RUBRACA [Suspect]
     Active Substance: RUCAPARIB CAMSYLATE
     Indication: Malignant peritoneal neoplasm
     Dosage: 200 MILLIGRAM, QD
     Route: 048
  2. RUBRACA [Suspect]
     Active Substance: RUCAPARIB CAMSYLATE
     Dosage: 400 MILLIGRAM, QD
     Route: 048
  3. RUBRACA [Suspect]
     Active Substance: RUCAPARIB CAMSYLATE
     Dosage: 300 MILLIGRAM, QD
     Route: 048
     Dates: start: 202112
  4. RUBRACA [Suspect]
     Active Substance: RUCAPARIB CAMSYLATE
     Dosage: 400 MILLIGRAM, BID
     Route: 048
     Dates: start: 202201
  5. RUBRACA [Suspect]
     Active Substance: RUCAPARIB CAMSYLATE
     Dosage: 200 MILLIGRAM, BID
     Route: 048
     Dates: start: 20220203

REACTIONS (8)
  - Myalgia [Unknown]
  - Headache [Unknown]
  - Constipation [Unknown]
  - Stomatitis [Not Recovered/Not Resolved]
  - Fatigue [Not Recovered/Not Resolved]
  - Muscular weakness [Unknown]
  - Dyspepsia [Unknown]
  - Product physical consistency issue [Unknown]
